FAERS Safety Report 6107494-4 (Version None)
Quarter: 2009Q1

REPORT INFORMATION
  Report Type: 
  Country: None (occurrence: None)
  Receive Date: 20090309
  Receipt Date: 20090225
  Transmission Date: 20090719
  Serious: Yes (Hospitalization, Other)
  Sender: FDA-Public Use
  Company Number: FR-PFIZER INC-2009176574

PATIENT

DRUGS (9)
  1. ZYVOXID [Suspect]
     Dosage: UNK
     Route: 048
     Dates: start: 20071004, end: 20071203
  2. ARANESP [Suspect]
     Indication: ANAEMIA OF MALIGNANT DISEASE
     Dosage: 300 UG, WEEKLY
     Route: 058
     Dates: start: 20070124
  3. BACTRIM [Suspect]
     Route: 048
     Dates: start: 20070822, end: 20071211
  4. ROCEPHIN [Suspect]
     Dosage: UNK
     Route: 042
     Dates: start: 20070826, end: 20071203
  5. VIBRAMYCIN [Suspect]
     Dosage: UNK
     Route: 048
     Dates: start: 20070822, end: 20071004
  6. THALIDOMIDE [Suspect]
     Dosage: UNK
     Route: 048
     Dates: start: 20050110
  7. ASPIRIN [Suspect]
     Route: 048
  8. FOLIC ACID [Suspect]
     Route: 048
     Dates: start: 20070922
  9. DURAGESIC-100 [Suspect]
     Route: 062
     Dates: start: 20071006

REACTIONS (2)
  - HEPATITIS CHOLESTATIC [None]
  - NOCARDIOSIS [None]
